FAERS Safety Report 9402017 (Version 2)
Quarter: 2013Q3

REPORT INFORMATION
  Report Type: Report from Study
  Country: US (occurrence: US)
  Receive Date: 20130716
  Receipt Date: 20130723
  Transmission Date: 20140515
  Serious: Yes (Hospitalization, Other)
  Sender: FDA-Public Use
  Company Number: PHEH2013US014755

PATIENT
  Age: 57 Year
  Sex: Female
  Weight: 78.46 kg

DRUGS (28)
  1. GILENYA [Suspect]
     Indication: MULTIPLE SCLEROSIS
     Dosage: 0.5 MG, QD
     Route: 048
     Dates: start: 20130710
  2. RELAFEN [Concomitant]
     Dosage: 1500 MG, UNK
     Route: 048
  3. CITRACAL + D [Concomitant]
     Dosage: 1 DF, BID, 315-200 MG
     Route: 048
  4. VITAMIN D3 [Concomitant]
     Dosage: 7000 U, UNK
     Route: 048
  5. FLEXERIL [Concomitant]
     Dosage: 10 MG, QID
     Route: 048
  6. ZANAFLEX [Concomitant]
     Dosage: 4 MG, TID
     Route: 048
  7. ZOFRAN [Concomitant]
     Dosage: 4 MG, Q8H
     Route: 042
  8. MIRALAX [Concomitant]
     Route: 048
  9. RYTHMOL [Concomitant]
     Dosage: 150 MG, TID
     Route: 048
  10. MYCOSTATIN [Concomitant]
     Route: 048
  11. NAMENDA [Concomitant]
     Dosage: 10 MG, BID
     Route: 048
  12. CAFERGOT [Concomitant]
     Dosage: 1 DF, UNK
     Route: 048
  13. DIFLUCAN [Concomitant]
     Dosage: 100 MG, QD
     Route: 048
  14. PROTONIX [Concomitant]
     Dosage: 1 DF, UNK
     Route: 048
  15. PATADAY [Concomitant]
     Dosage: 1 DRP, BID, PLACE 1 DROP INTO EACH EYE
  16. MACRODANTIN [Concomitant]
     Dosage: 1 DF, UNK
     Route: 048
  17. ULTRAM ER [Concomitant]
     Dosage: 1 DF, BID
     Route: 048
  18. DIPROSONE [Concomitant]
     Route: 061
  19. K-DUR [Concomitant]
     Dosage: 20 MEQ, UNK
     Route: 048
  20. ASA [Concomitant]
     Dosage: 81 MG, UNK
     Route: 048
  21. DILAUDID [Concomitant]
     Dosage: 1 DF, Q6H
     Route: 048
  22. STRESSTAB [Concomitant]
     Dosage: 1 DF, UNK
     Route: 048
  23. DITROPAN [Concomitant]
     Route: 048
  24. DURAGESIC [Concomitant]
     Route: 062
  25. PROVIGIL [Concomitant]
     Dosage: 1 DF, UNK
     Route: 048
  26. IMITREX [Concomitant]
     Route: 058
  27. NORMAL SALINE [Concomitant]
     Dosage: 10 ML, PRN
     Route: 042
  28. HEPARIN [Concomitant]
     Dosage: 5 ML, PRN
     Route: 042

REACTIONS (11)
  - Hypotension [Unknown]
  - Dizziness postural [Unknown]
  - Sinus bradycardia [Recovering/Resolving]
  - Chest pain [Unknown]
  - Fatigue [Unknown]
  - Palpitations [Unknown]
  - Loss of consciousness [Unknown]
  - Varicose vein [Unknown]
  - Somnolence [Recovering/Resolving]
  - Myalgia [Unknown]
  - Local swelling [Unknown]
